FAERS Safety Report 6610082-4 (Version None)
Quarter: 2010Q1

REPORT INFORMATION
  Report Type: 
  Country: None (occurrence: None)
  Receive Date: 20100302
  Receipt Date: 20100219
  Transmission Date: 20100710
  Serious: Yes (Death, Congenital Anomaly)
  Sender: FDA-Public Use
  Company Number: US-MYLANLABS-2010S1002488

PATIENT

DRUGS (1)
  1. AMNESTEEM [Suspect]
     Route: 064

REACTIONS (2)
  - HEART DISEASE CONGENITAL [None]
  - HYDROCEPHALUS [None]
